FAERS Safety Report 5611257-3 (Version None)
Quarter: 2008Q1

REPORT INFORMATION
  Report Type: 
  Country: None (occurrence: None)
  Receive Date: 20080201
  Receipt Date: 20080124
  Transmission Date: 20080703
  Serious: Yes (Hospitalization)
  Sender: FDA-Public Use
  Company Number: PHHO2008NL01394

PATIENT
  Age: 52 Year
  Sex: Male
  Weight: 84.7 kg

DRUGS (3)
  1. NEORAL [Suspect]
     Indication: RENAL TRANSPLANT
     Dosage: 400 MG/DAY
     Route: 048
     Dates: start: 20060614
  2. NEORAL [Suspect]
     Route: 048
  3. MYFORTIC [Suspect]
     Indication: RENAL TRANSPLANT
     Dosage: 1440 MG/DAY
     Route: 048
     Dates: start: 20060614

REACTIONS (2)
  - BLOOD CREATININE INCREASED [None]
  - NEPHROPATHY TOXIC [None]
